FAERS Safety Report 7035189-1 (Version None)
Quarter: 2010Q4

REPORT INFORMATION
  Report Type: 
  Country: None (occurrence: None)
  Receive Date: 20101008
  Receipt Date: 20100928
  Transmission Date: 20110411
  Serious: Yes (Hospitalization)
  Sender: FDA-Public Use
  Company Number: US-ABBOTT-10P-163-0671690-00

PATIENT
  Weight: 72 kg

DRUGS (10)
  1. HUMIRA [Suspect]
     Indication: CROHN'S DISEASE
     Route: 058
     Dates: start: 20090305
  2. METHOTREXATE [Concomitant]
     Indication: CROHN'S DISEASE
     Dosage: 2.5 MG X 6 TABLETS
     Dates: start: 20070925
  3. CHOLESTYRAMINE [Concomitant]
     Indication: DIARRHOEA
     Dates: start: 20070925
  4. FOLIC ACID [Concomitant]
     Indication: VITAMIN SUPPLEMENTATION
     Dates: start: 20070925
  5. ALLOPURINOL [Concomitant]
     Indication: GOUT
     Dates: start: 20070101
  6. BEELITH [Concomitant]
     Indication: MINERAL SUPPLEMENTATION
     Dates: start: 20090122
  7. CALCIUM WITH VITAMIN D [Concomitant]
     Indication: MINERAL SUPPLEMENTATION
     Dates: start: 20090122
  8. POTASSIUM CITRATE [Concomitant]
     Indication: NEPHROLITHIASIS
     Dates: start: 20090101
  9. VITAMIN D [Concomitant]
     Indication: VITAMIN SUPPLEMENTATION
     Dates: start: 20090122
  10. LISINOPRIL [Concomitant]
     Indication: HYPERTENSION

REACTIONS (4)
  - ENTERITIS [None]
  - FISTULA [None]
  - GASTROINTESTINAL DISORDER [None]
  - LARGE INTESTINAL STRICTURE [None]
